FAERS Safety Report 23753335 (Version 1)
Quarter: 2024Q2

REPORT INFORMATION
  Report Type: Spontaneous
  Country: IT (occurrence: IT)
  Receive Date: 20240417
  Receipt Date: 20240417
  Transmission Date: 20240715
  Serious: Yes (Hospitalization)
  Sender: FDA-Public Use
  Company Number: None

PATIENT
  Age: 54 Year
  Sex: Male

DRUGS (1)
  1. ERELZI [Suspect]
     Active Substance: ETANERCEPT-SZZS
     Indication: Psoriasis
     Dosage: ERELZI 50 MG I FIALA SOTTOCUTE ALLA SETTIMANA
     Route: 058
     Dates: start: 201906, end: 20230715

REACTIONS (1)
  - Brucellosis [Recovered/Resolved]

NARRATIVE: CASE EVENT DATE: 20230101
